FAERS Safety Report 20060481 (Version 1)
Quarter: 2021Q4

REPORT INFORMATION
  Report Type: Report from Study
  Country: ES (occurrence: ES)
  Receive Date: 20211112
  Receipt Date: 20211112
  Transmission Date: 20220303
  Serious: Yes (Other)
  Sender: FDA-Public Use
  Company Number: ES-CELLTRION INC.-2021ES014954

PATIENT

DRUGS (7)
  1. TRASTUZUMAB [Suspect]
     Active Substance: TRASTUZUMAB
     Indication: Breast cancer
     Dosage: 483 MG, 07/OCT/2020, 29/OCT/2020, 25/NOV/2020
     Route: 041
     Dates: start: 20200805
  2. PERTUZUMAB [Suspect]
     Active Substance: PERTUZUMAB
     Indication: Breast cancer
     Dosage: 420 MG (07/OCT/2020, 29/OCT/2020, 25/NOV/2020)
     Route: 042
  3. PACLITAXEL [Suspect]
     Active Substance: PACLITAXEL
     Indication: Breast cancer
     Dosage: 168 MG (BEFORE ONSET: OF SAE14/OCT/2020, 29/OCT/2021, 25/NOV/2020, 1/DEC/2021)
     Route: 042
     Dates: start: 20200805
  4. CARBOPLATIN [Suspect]
     Active Substance: CARBOPLATIN
     Indication: Breast cancer
     Dosage: 320 MG (BEFORE ONSET OF SAE: 14/OCT/2020, 29/OCT/2021, 25/NOV/2020, 1/DEC/2021)
     Route: 042
     Dates: start: 20200805
  5. DEXCHLORPHENIRAMINE [Concomitant]
     Active Substance: DEXCHLORPHENIRAMINE
     Dosage: 5 MG
     Route: 042
     Dates: start: 20200805
  6. DEXCHLORPHENIRAMINE [Concomitant]
     Active Substance: DEXCHLORPHENIRAMINE
     Dosage: UNK
     Dates: start: 20200805, end: 20200805
  7. HYDROCORTISONE SODIUM PHOSPHATE [Concomitant]
     Active Substance: HYDROCORTISONE SODIUM PHOSPHATE
     Dosage: 200 MILLIGRAM
     Route: 042
     Dates: start: 20201125, end: 20201125

REACTIONS (3)
  - Anaphylactic shock [Recovered/Resolved]
  - Anaphylactic shock [Recovered/Resolved]
  - Off label use [Unknown]

NARRATIVE: CASE EVENT DATE: 20201014
